FAERS Safety Report 15405612 (Version 1)
Quarter: 2018Q3

REPORT INFORMATION
  Report Type: Spontaneous
  Country: LB (occurrence: LB)
  Receive Date: 20180920
  Receipt Date: 20180920
  Transmission Date: 20181010
  Serious: Yes (Death, Hospitalization, Other)
  Sender: FDA-Public Use
  Company Number: LB-JAZZ-2018-LB-013649

PATIENT
  Age: 23 Year
  Sex: Female

DRUGS (7)
  1. CYTARABINE. [Suspect]
     Active Substance: CYTARABINE
     Indication: T-CELL TYPE ACUTE LEUKAEMIA
     Dosage: 70 MG ON DAY 0
     Route: 037
     Dates: start: 20171222, end: 20171222
  2. PREDNISONE. [Suspect]
     Active Substance: PREDNISONE
     Indication: T-CELL TYPE ACUTE LEUKAEMIA
     Dosage: 60 MG/M2 DAILY FOR 28 DAYS
     Dates: start: 20171222, end: 2018
  3. VINCRISTINE [Suspect]
     Active Substance: VINCRISTINE
     Indication: T-CELL TYPE ACUTE LEUKAEMIA
     Dosage: 1.5 MG/M2 (CAPPED AT 2 MG) WEEKLY FOR THREE WEEKS
     Dates: start: 20171222
  4. METHOTREXATE. [Suspect]
     Active Substance: METHOTREXATE
     Indication: T-CELL TYPE ACUTE LEUKAEMIA
     Dosage: 12 MG, ON DAY 14
     Route: 037
  5. VENETOCLAX. [Suspect]
     Active Substance: VENETOCLAX
     Dosage: UNK
     Dates: start: 20180131
  6. ASPARAGINASE [Suspect]
     Active Substance: ASPARAGINASE
     Indication: T-CELL TYPE ACUTE LEUKAEMIA
     Dosage: 6000 UNITS/M2 THREE TIMES WEEKLY FOR 9 DOSES
     Dates: start: 20171222
  7. VENETOCLAX. [Suspect]
     Active Substance: VENETOCLAX
     Indication: T-CELL TYPE ACUTE LEUKAEMIA
     Dosage: 5?DAY RAMP UP WITH 20 MG/DAY THEN 50 MG/DAY THEN 100 MG/DAY THEN 200 TO 400 MG ONCE DAILY
     Dates: start: 20171229, end: 201801

REACTIONS (11)
  - Respiratory distress [Fatal]
  - Infection [Unknown]
  - Tumour lysis syndrome [Recovering/Resolving]
  - Graft versus host disease [Unknown]
  - Hepatosplenomegaly [Unknown]
  - Organ failure [Unknown]
  - Bone marrow failure [Unknown]
  - Anaemia [Unknown]
  - Neurotoxicity [Recovered/Resolved]
  - Lung infiltration [Unknown]
  - Gastrointestinal disorder [Unknown]
